FAERS Safety Report 22374186 (Version 3)
Quarter: 2023Q2

REPORT INFORMATION
  Report Type: Spontaneous
  Country: NL (occurrence: NL)
  Receive Date: 20230526
  Receipt Date: 20230622
  Transmission Date: 20230722
  Serious: Yes (Disabling, Other)
  Sender: FDA-Public Use
  Company Number: NL-ELI_LILLY_AND_COMPANY-NL202305014264

PATIENT
  Age: 66 Year
  Sex: Male
  Weight: 90 kg

DRUGS (9)
  1. SELPERCATINIB [Suspect]
     Active Substance: SELPERCATINIB
     Indication: Non-small cell lung cancer
     Dosage: 80 MG, BID
     Route: 048
     Dates: start: 20230329
  2. SELPERCATINIB [Suspect]
     Active Substance: SELPERCATINIB
     Dosage: 80 MG, DAILY
     Route: 065
     Dates: start: 20230404
  3. SELPERCATINIB [Suspect]
     Active Substance: SELPERCATINIB
     Dosage: 160 MG, DAILY
     Route: 065
     Dates: start: 20230404
  4. SELPERCATINIB [Suspect]
     Active Substance: SELPERCATINIB
     Dosage: 80 MG, BID
     Route: 065
     Dates: start: 20230407
  5. SELPERCATINIB [Suspect]
     Active Substance: SELPERCATINIB
     Dosage: 80 MG, DAILY
     Route: 065
     Dates: start: 20230426
  6. SELPERCATINIB [Suspect]
     Active Substance: SELPERCATINIB
     Dosage: 80 MG, OTHER (EVERY OTHER DAY)
     Route: 048
     Dates: start: 20230510, end: 20230524
  7. SELPERCATINIB [Suspect]
     Active Substance: SELPERCATINIB
     Dosage: 40 MG, DAILY
     Route: 065
     Dates: start: 20230531
  8. PRALSETINIB [Concomitant]
     Active Substance: PRALSETINIB
     Indication: Product used for unknown indication
     Dosage: UNK, UNKNOWN
     Route: 065
  9. PRALSETINIB [Concomitant]
     Active Substance: PRALSETINIB
     Dosage: UNK, UNKNOWN (DOSE DECREASED)
     Route: 065

REACTIONS (1)
  - Toxicity to various agents [Recovering/Resolving]

NARRATIVE: CASE EVENT DATE: 20230405
